FAERS Safety Report 21469602 (Version 1)
Quarter: 2022Q4

REPORT INFORMATION
  Report Type: Spontaneous
  Country: US (occurrence: US)
  Receive Date: 20221018
  Receipt Date: 20221018
  Transmission Date: 20230113
  Serious: No
  Sender: FDA-Public Use
  Company Number: US-ADAMAS PHARMA, LLC-2022ADA00784

PATIENT
  Sex: Male

DRUGS (19)
  1. GOCOVRI [Suspect]
     Active Substance: AMANTADINE
     Indication: Parkinson^s disease
     Dosage: UNK UNK, 1X/DAY
     Route: 048
     Dates: start: 20210908
  2. GOCOVRI [Suspect]
     Active Substance: AMANTADINE
     Dosage: 274 MG, 1X/DAY
     Route: 048
  3. GOCOVRI [Suspect]
     Active Substance: AMANTADINE
     Dosage: 137 MG, 1X/DAY
     Route: 048
  4. ALLOPURINOL [Concomitant]
     Active Substance: ALLOPURINOL
  5. ASPIRIN LOW DOSE EC D/F [Concomitant]
  6. CARBIDOPA/ LEVODOPA CR [Concomitant]
  7. CELEXA [Concomitant]
     Active Substance: CITALOPRAM HYDROBROMIDE
  8. CENTRUM SILVER 50+ MEN [Concomitant]
  9. COLACE [Concomitant]
     Active Substance: DOCUSATE SODIUM
  10. DESYREL [Concomitant]
     Active Substance: TRAZODONE HYDROCHLORIDE
  11. FLAXSEED [Concomitant]
     Active Substance: FLAX SEED
  12. FLOMAX [Concomitant]
     Active Substance: TAMSULOSIN HYDROCHLORIDE
  13. MOVE FREE JOINT HEALTH ADVANCED [Concomitant]
  14. NEURONTIN [Concomitant]
     Active Substance: GABAPENTIN
  15. OCUVITE ADULT 50+ VITAMINS/MINERALS [Concomitant]
  16. POTASSIUM CITRATE [Concomitant]
     Active Substance: POTASSIUM CITRATE
  17. RESTASIS [Concomitant]
     Active Substance: CYCLOSPORINE
  18. VITAMIN D [Concomitant]
     Active Substance: VITAMIN D NOS
  19. ZETIA [Concomitant]
     Active Substance: EZETIMIBE

REACTIONS (1)
  - Hallucination, visual [Recovered/Resolved]
